FAERS Safety Report 5338317-9 (Version None)
Quarter: 2007Q2

REPORT INFORMATION
  Report Type: 
  Country: None (occurrence: None)
  Receive Date: 20070405
  Receipt Date: 20061121
  Transmission Date: 20071010
  Serious: No
  Sender: FDA-Public Use
  Company Number: US200611003889

PATIENT
  Age: 50 Year
  Sex: Female

DRUGS (4)
  1. CYMBALTA [Suspect]
     Indication: PAIN
     Dosage: 20 MG DAILY (1/D) ORAL
     Route: 048
     Dates: start: 20061120
  2. VICODIN [Concomitant]
  3. KLONOPIN [Concomitant]
  4. PROTONIX [Concomitant]

REACTIONS (7)
  - ANXIETY [None]
  - DYSPNOEA [None]
  - FEELING JITTERY [None]
  - FORMICATION [None]
  - MOVEMENT DISORDER [None]
  - NAUSEA [None]
  - THINKING ABNORMAL [None]
